FAERS Safety Report 6179516-6 (Version None)
Quarter: 2009Q2

REPORT INFORMATION
  Report Type: 
  Country: None (occurrence: None)
  Receive Date: 20090505
  Receipt Date: 20090423
  Transmission Date: 20091009
  Serious: Yes (Death, Hospitalization)
  Sender: FDA-Public Use
  Company Number: ES-PFIZER INC-2009182121

PATIENT

DRUGS (10)
  1. ZYVOXID [Suspect]
     Indication: PNEUMONIA
     Dosage: 2 MG/ML, 2X/DAY
     Route: 042
     Dates: start: 20081223, end: 20090105
  2. ACYCLOVIR SODIUM [Suspect]
     Indication: ORAL HERPES
     Dosage: 250 NG, 3X/DAY
     Route: 042
     Dates: start: 20081225, end: 20081229
  3. MEROPENEM [Suspect]
     Indication: PNEUMONIA
     Dosage: 1 G, 2X/DAY
     Route: 042
     Dates: start: 20081223, end: 20090105
  4. METHOTREXATE [Concomitant]
     Indication: RHEUMATOID ARTHRITIS
     Dosage: UNK
     Route: 048
     Dates: start: 20070101, end: 20081219
  5. ATROVENT [Concomitant]
     Route: 045
     Dates: start: 20081217
  6. CLEXANE [Concomitant]
     Route: 058
     Dates: start: 20081217
  7. DACORTIN [Concomitant]
     Indication: RHEUMATOID ARTHRITIS
     Dosage: UNK
     Route: 048
     Dates: start: 20070101
  8. RENITEC [Concomitant]
     Indication: HYPERTENSION
     Dosage: UNK
     Route: 048
     Dates: start: 20070101
  9. TAZOCEL [Concomitant]
     Indication: PNEUMONIA
     Route: 042
     Dates: start: 20081217, end: 20081223
  10. VENTOLIN [Concomitant]
     Route: 045
     Dates: start: 20081217

REACTIONS (3)
  - NEUTROPENIA [None]
  - SEPSIS [None]
  - THROMBOCYTOPENIA [None]
